FAERS Safety Report 10561268 (Version 1)
Quarter: 2014Q4

REPORT INFORMATION
  Report Type: Spontaneous
  Country: US (occurrence: US)
  Receive Date: 20141103
  Receipt Date: 20141103
  Transmission Date: 20150529
  Serious: Yes (Death, Other)
  Sender: FDA-Public Use
  Company Number: US-MYLANLABS-2014M1009107

PATIENT

DRUGS (5)
  1. METHOTREXATE SODIUM. [Suspect]
     Active Substance: METHOTREXATE SODIUM
     Indication: PSORIASIS
  2. FUROSEMIDE. [Suspect]
     Active Substance: FUROSEMIDE
  3. OMEPRAZOLE. [Suspect]
     Active Substance: OMEPRAZOLE
  4. MELOXICAM. [Suspect]
     Active Substance: MELOXICAM
  5. METHOTREXATE SODIUM. [Suspect]
     Active Substance: METHOTREXATE SODIUM
     Indication: PSORIATIC ARTHROPATHY

REACTIONS (6)
  - Toxicity to various agents [Fatal]
  - Renal failure [Fatal]
  - Drug interaction [Fatal]
  - Psoriasis [Fatal]
  - Skin erosion [Fatal]
  - Pancytopenia [Fatal]
